FAERS Safety Report 9116922 (Version 1)
Quarter: 2013Q1

REPORT INFORMATION
  Report Type: Spontaneous
  Country: US (occurrence: US)
  Receive Date: 20130225
  Receipt Date: 20130225
  Transmission Date: 20140127
  Serious: No
  Sender: FDA-Public Use
  Company Number: US-009507513-1302USA010987

PATIENT
  Age: 59 Year
  Sex: Male
  Weight: 99.77 kg

DRUGS (5)
  1. PEGINTRON [Suspect]
     Dosage: 96 MICROGRAM, QW
     Route: 058
  2. RIBASPHERE [Suspect]
     Dosage: 200 MG
  3. TELAPREVIR [Suspect]
     Dosage: 375 MG
  4. CHOLECALCIFEROL [Concomitant]
     Dosage: 2000 UNIT
  5. IBUPROFEN [Concomitant]
     Dosage: 200 MG

REACTIONS (2)
  - Blood count abnormal [Unknown]
  - Diarrhoea [Unknown]
